FAERS Safety Report 24024433 (Version 2)
Quarter: 2024Q3

REPORT INFORMATION
  Report Type: Report from Study
  Country: CA (occurrence: CA)
  Receive Date: 20240628
  Receipt Date: 20240710
  Transmission Date: 20241016
  Serious: No
  Sender: ROCHE
  Company Number: CA-ROCHE-3500303

PATIENT
  Age: 78 Year
  Sex: Female

DRUGS (1)
  1. ALECTINIB [Suspect]
     Active Substance: ALECTINIB
     Indication: Product used for unknown indication
     Route: 048
     Dates: start: 20240105

REACTIONS (3)
  - Sensory disturbance [Unknown]
  - Constipation [Unknown]
  - Fatigue [Unknown]
